FAERS Safety Report 9435842 (Version 1)
Quarter: 2013Q3

REPORT INFORMATION
  Report Type: Spontaneous
  Country: DE (occurrence: DE)
  Receive Date: 20130801
  Receipt Date: 20130801
  Transmission Date: 20140515
  Serious: Yes (Other)
  Sender: FDA-Public Use
  Company Number: DE-EISAI INC-E2020-12691-SPO-DE

PATIENT
  Age: 76 Year
  Sex: Female

DRUGS (3)
  1. ARICEPT [Suspect]
     Indication: DEMENTIA
     Dosage: UNKNOWN
     Route: 048
  2. ARICEPT [Suspect]
     Indication: DEPRESSION
  3. ARICEPT [Suspect]
     Indication: SPEECH DISORDER

REACTIONS (4)
  - Suicidal ideation [Not Recovered/Not Resolved]
  - Mania [Not Recovered/Not Resolved]
  - Euphoric mood [Not Recovered/Not Resolved]
  - Off label use [Not Recovered/Not Resolved]
